FAERS Safety Report 25306184 (Version 1)
Quarter: 2025Q2

REPORT INFORMATION
  Report Type: Spontaneous
  Country: US (occurrence: US)
  Receive Date: 20250513
  Receipt Date: 20250513
  Transmission Date: 20250716
  Serious: Yes (Other)
  Sender: UNICHEM
  Company Number: US-UNICHEM LABORATORIES LIMITED-UNI-2025-US-002235

PATIENT

DRUGS (12)
  1. TIZANIDINE [Suspect]
     Active Substance: TIZANIDINE
     Indication: Electrocardiogram QT prolonged
     Route: 065
  2. MIRTAZAPINE [Suspect]
     Active Substance: MIRTAZAPINE
     Indication: Depression
     Route: 065
  3. MIRTAZAPINE [Suspect]
     Active Substance: MIRTAZAPINE
     Indication: Anxiety
  4. VENLAFAXINE [Suspect]
     Active Substance: VENLAFAXINE HYDROCHLORIDE
     Indication: Depression
     Route: 065
  5. VENLAFAXINE [Suspect]
     Active Substance: VENLAFAXINE HYDROCHLORIDE
     Indication: Anxiety
  6. TRAZODONE [Suspect]
     Active Substance: TRAZODONE HYDROCHLORIDE
     Indication: Depression
     Route: 065
  7. TRAZODONE [Suspect]
     Active Substance: TRAZODONE HYDROCHLORIDE
     Indication: Anxiety
  8. ONDANSETRON [Suspect]
     Active Substance: ONDANSETRON
     Indication: Gastric bypass
     Route: 065
  9. MIDODRINE [Suspect]
     Active Substance: MIDODRINE
     Indication: Orthostatic intolerance
     Route: 065
  10. MIDODRINE [Suspect]
     Active Substance: MIDODRINE
     Indication: Labile hypertension
  11. MIDODRINE [Suspect]
     Active Substance: MIDODRINE
     Indication: Postural orthostatic tachycardia syndrome
  12. MIDODRINE [Suspect]
     Active Substance: MIDODRINE
     Indication: Syncope

REACTIONS (1)
  - Torsade de pointes [Unknown]
